FAERS Safety Report 8934301 (Version 1)
Quarter: 2012Q4

REPORT INFORMATION
  Report Type: 
  Country: CA (occurrence: CA)
  Receive Date: 20121129
  Receipt Date: 20121129
  Transmission Date: 20130627
  Serious: Yes (Other)
  Sender: FDA-Public Use
  Company Number: CA-BAYER-2012-124008

PATIENT
  Age: 33 Year
  Sex: Female

DRUGS (4)
  1. BETASERON [Suspect]
     Indication: MULTIPLE SCLEROSIS
     Dosage: 0.250 mg, UNK
     Dates: start: 20030101
  2. VITAMIN D [Concomitant]
  3. ALERTEC [Concomitant]
  4. ZOPICLONE [Concomitant]

REACTIONS (1)
  - Subcutaneous abscess [Recovered/Resolved]
